FAERS Safety Report 21281105 (Version 1)
Quarter: 2022Q3

REPORT INFORMATION
  Report Type: Spontaneous
  Country: CH (occurrence: CH)
  Receive Date: 20220901
  Receipt Date: 20220901
  Transmission Date: 20221026
  Serious: Yes (Other)
  Sender: FDA-Public Use
  Company Number: CH-TEVA-2022-CH-2069091

PATIENT
  Sex: Male

DRUGS (1)
  1. DOCETAXEL [Suspect]
     Active Substance: DOCETAXEL
     Indication: Leiomyosarcoma recurrent
     Dosage: DOCETAXEL 120 MG DAY 8, THE CYCLE WOULD BE REPEATED EVERY THIRD WEEK
     Route: 065

REACTIONS (1)
  - Neoplasm progression [Unknown]
